FAERS Safety Report 5816506-4 (Version None)
Quarter: 2008Q3

REPORT INFORMATION
  Report Type: 
  Country: None (occurrence: None)
  Receive Date: 20080717
  Receipt Date: 20080717
  Transmission Date: 20090109
  Serious: No
  Sender: FDA-Public Use
  Company Number: None

PATIENT
  Sex: Female

DRUGS (1)
  1. LUPRON DEPOT [Suspect]
     Dosage: 11.25 MG 1 3 MONTHS IM
     Route: 030

REACTIONS (8)
  - BACK PAIN [None]
  - HERPES ZOSTER [None]
  - HYPERHIDROSIS [None]
  - HYSTERECTOMY [None]
  - MENOPAUSE [None]
  - MOOD SWINGS [None]
  - MYALGIA [None]
  - PAIN IN EXTREMITY [None]
